APPROVED DRUG PRODUCT: LACTATED RINGER'S IN PLASTIC CONTAINER
Active Ingredient: CALCIUM CHLORIDE; POTASSIUM CHLORIDE; SODIUM CHLORIDE; SODIUM LACTATE
Strength: 20MG/100ML;30MG/100ML;600MG/100ML;310MG/100ML
Dosage Form/Route: SOLUTION;IRRIGATION
Application: N019416 | Product #001 | TE Code: AT
Applicant: OTSUKA ICU MEDICAL LLC
Approved: Jan 17, 1986 | RLD: Yes | RS: Yes | Type: RX